FAERS Safety Report 4291833-3 (Version None)
Quarter: 2004Q1

REPORT INFORMATION
  Report Type: 
  Country: None (occurrence: None)
  Receive Date: 20040211
  Receipt Date: 20030611
  Transmission Date: 20041129
  Serious: No
  Sender: FDA-Public Use
  Company Number: US-GLAXOSMITHKLINE-A0413096A

PATIENT
  Sex: Male

DRUGS (1)
  1. IMITREX [Suspect]
     Indication: CLUSTER HEADACHE

REACTIONS (2)
  - OVERDOSE [None]
  - THERAPEUTIC RESPONSE DECREASED [None]
